FAERS Safety Report 13824704 (Version 1)
Quarter: 2017Q3

REPORT INFORMATION
  Report Type: Spontaneous
  Country: US (occurrence: US)
  Receive Date: 20170801
  Receipt Date: 20170801
  Transmission Date: 20171127
  Serious: Yes (Other)
  Sender: FDA-Public Use
  Company Number: None

PATIENT
  Sex: Female
  Weight: 76.05 kg

DRUGS (10)
  1. GABAPENTIN. [Concomitant]
     Active Substance: GABAPENTIN
  2. DAILY VITAMIN [Concomitant]
     Active Substance: VITAMINS
  3. OXYCONTN [Concomitant]
  4. VOLTAREN [Concomitant]
     Active Substance: DICLOFENAC SODIUM
  5. PILOCARPINE. [Concomitant]
     Active Substance: PILOCARPINE
  6. VITAMIN D [Concomitant]
     Active Substance: CHOLECALCIFEROL
  7. CIMZIA [Suspect]
     Active Substance: CERTOLIZUMAB PEGOL
     Indication: PSORIATIC ARTHROPATHY
     Dosage: ?          OTHER FREQUENCY:EVERY TWO WEEKS;?
     Route: 058
     Dates: start: 20170525, end: 20170701
  8. WHEELCHAIR [Concomitant]
     Active Substance: DEVICE
  9. METHOTREXATE. [Concomitant]
     Active Substance: METHOTREXATE
  10. EFFEXOR EXTENDED RELEASE [Concomitant]

REACTIONS (5)
  - Cellulitis [None]
  - Influenza like illness [None]
  - Sunburn [None]
  - Infection [None]
  - Pain in extremity [None]

NARRATIVE: CASE EVENT DATE: 20170701
